FAERS Safety Report 10623674 (Version 2)
Quarter: 2014Q4

REPORT INFORMATION
  Report Type: Spontaneous
  Country: JP (occurrence: JP)
  Receive Date: 20141203
  Receipt Date: 20141203
  Transmission Date: 20150529
  Serious: Yes (Hospitalization)
  Sender: FDA-Public Use
  Company Number: JP-BAYER-2014-153822

PATIENT
  Age: 59 Year
  Sex: Male
  Weight: 42.63 kg

DRUGS (10)
  1. VOGLIBOSE [Concomitant]
     Active Substance: VOGLIBOSE
     Indication: DIABETES MELLITUS
     Dosage: DAILY DOSE .6 MG
     Route: 048
  2. WHITE PETROLEUM [Concomitant]
     Active Substance: PETROLATUM
     Indication: DERMATOSIS
     Dosage: UNK
     Route: 061
     Dates: start: 20140910
  3. NEXAVAR [Suspect]
     Active Substance: SORAFENIB
     Indication: HEPATOCELLULAR CARCINOMA
     Dosage: DAILY DOSE 400 MG
     Route: 048
     Dates: start: 20140910, end: 20141006
  4. PYDOXAL [Concomitant]
     Active Substance: PYRIDOXAL
     Indication: DERMATOSIS
     Dosage: DAILY DOSE 60 MG
     Route: 048
     Dates: start: 20140910
  5. MICARDIS [Concomitant]
     Active Substance: TELMISARTAN
     Indication: HYPERTENSION
     Dosage: DAILY DOSE 40 MG
     Route: 048
  6. UREPEARL [Concomitant]
     Active Substance: UREA
     Indication: DERMATOSIS
     Dosage: UNK
     Route: 061
     Dates: start: 20140910
  7. METFORMIN HYDROCHLORIDE. [Concomitant]
     Active Substance: METFORMIN HYDROCHLORIDE
     Indication: DIABETES MELLITUS
     Dosage: DAILY DOSE 500 MG
     Route: 048
     Dates: end: 20140915
  8. CEFSPAN [Concomitant]
     Active Substance: CEFIXIME
     Dosage: DAILY DOSE 300 MG
     Route: 048
     Dates: start: 20140910
  9. AMLODIPINE BESILATE [Concomitant]
     Active Substance: AMLODIPINE BESYLATE
     Indication: HYPERTENSION
     Dosage: DAILY DOSE 5 MG
     Route: 048
  10. JANUVIA [Concomitant]
     Active Substance: SITAGLIPTIN PHOSPHATE
     Indication: DIABETES MELLITUS
     Dosage: DAILY DOSE 50 MG
     Route: 048

REACTIONS (1)
  - Liver disorder [Recovering/Resolving]

NARRATIVE: CASE EVENT DATE: 20141006
